FAERS Safety Report 16071737 (Version 1)
Quarter: 2019Q1

REPORT INFORMATION
  Report Type: Report from Study
  Country: FR (occurrence: FR)
  Receive Date: 20190314
  Receipt Date: 20190314
  Transmission Date: 20190418
  Serious: Yes (Hospitalization)
  Sender: FDA-Public Use
  Company Number: FR-GUERBET-FR-20190136

PATIENT
  Age: 49 Year
  Sex: Male

DRUGS (1)
  1. DOTAREM [Suspect]
     Active Substance: GADOTERATE MEGLUMINE
     Indication: NUCLEAR MAGNETIC RESONANCE IMAGING
     Dosage: 3.0 ML/S
     Route: 042
     Dates: start: 20190304, end: 20190304

REACTIONS (3)
  - Urticaria [Recovered/Resolved]
  - Erythema [Recovered/Resolved]
  - Type I hypersensitivity [Recovered/Resolved]

NARRATIVE: CASE EVENT DATE: 20190304
